FAERS Safety Report 8846751 (Version 1)
Quarter: 2012Q4

REPORT INFORMATION
  Report Type: 
  Country: US (occurrence: US)
  Receive Date: 20121017
  Receipt Date: 20121017
  Transmission Date: 20130627
  Serious: Yes (Death)
  Sender: FDA-Public Use
  Company Number: US-ROCHE-1129894

PATIENT
  Sex: Female

DRUGS (4)
  1. XELODA [Suspect]
     Indication: BILIARY TRACT DISORDER
     Route: 065
     Dates: start: 20090825, end: 20100803
  2. XELODA [Suspect]
     Indication: BILE DUCT CANCER
  3. XELODA [Suspect]
     Indication: GALLBLADDER CANCER
  4. XELODA [Suspect]
     Indication: BILE DUCT CANCER

REACTIONS (1)
  - Disease progression [Fatal]
